FAERS Safety Report 19406173 (Version 2)
Quarter: 2021Q2

REPORT INFORMATION
  Report Type: Spontaneous
  Country: JP (occurrence: JP)
  Receive Date: 20210611
  Receipt Date: 20210616
  Transmission Date: 20210717
  Serious: Yes (Hospitalization, Other)
  Sender: FDA-Public Use
  Company Number: JP-STRIDES ARCOLAB LIMITED-2021SP006311

PATIENT
  Age: 79 Year
  Sex: Male

DRUGS (2)
  1. NEORAL [Suspect]
     Active Substance: CYCLOSPORINE
     Indication: RENAL TRANSPLANT
     Dosage: 100 MILLIGRAM PER 24 HOURS
     Route: 065
  2. PREDNISOLONE. [Suspect]
     Active Substance: PREDNISOLONE
     Indication: RENAL TRANSPLANT
     Dosage: 4 MILLIGRAM PER 24 HRS
     Route: 065

REACTIONS (6)
  - Intermittent claudication [Recovered/Resolved]
  - Low density lipoprotein increased [Recovered/Resolved]
  - Aortic stenosis [Recovered/Resolved]
  - Arteriosclerosis [Recovered/Resolved]
  - Condition aggravated [Recovered/Resolved]
  - Renal failure [Recovered/Resolved]
